FAERS Safety Report 6026405-3 (Version None)
Quarter: 2009Q1

REPORT INFORMATION
  Report Type: 
  Country: None (occurrence: None)
  Receive Date: 20090102
  Receipt Date: 20081222
  Transmission Date: 20090719
  Serious: Yes (Other)
  Sender: FDA-Public Use
  Company Number: PT-AMGEN-UK325256

PATIENT
  Sex: Female
  Weight: 78.5 kg

DRUGS (21)
  1. NEULASTA [Suspect]
     Indication: CHEMOTHERAPY
     Route: 058
     Dates: start: 20080418, end: 20080701
  2. DEXAMETASON [Concomitant]
     Route: 042
     Dates: start: 20080418
  3. ONDANSETRON [Concomitant]
     Route: 042
     Dates: start: 20080418
  4. CLEMASTINE FUMARATE [Concomitant]
     Route: 042
     Dates: start: 20080418
  5. METOCLOPRAMIDE [Concomitant]
     Dates: start: 20080418
  6. PREDNISOLONE [Concomitant]
     Route: 048
     Dates: start: 20080418
  7. RANIDINE [Concomitant]
     Route: 048
     Dates: start: 20080418
  8. NISTATIN [Concomitant]
     Dates: start: 20080418
  9. DOCETAXEL [Concomitant]
     Dates: start: 20080707
  10. GRANOCYTE [Concomitant]
     Dates: start: 20080709
  11. CAPTOPRIL [Concomitant]
  12. HYDROCHLOROTHIAZIDE [Concomitant]
  13. DIAMICRON [Concomitant]
  14. THYRAX [Concomitant]
  15. METFORMIN HCL [Concomitant]
  16. SIMVASTATIN [Concomitant]
  17. OMEPRAZOLE [Concomitant]
  18. CARTIA XT [Concomitant]
  19. TAXOTERE [Concomitant]
     Dates: start: 20080418
  20. ADRIAMYCIN PFS [Concomitant]
     Dates: start: 20080418
  21. CYCLOPHOSPHAMIDE [Concomitant]
     Dates: start: 20080418

REACTIONS (1)
  - FEBRILE NEUTROPENIA [None]
